FAERS Safety Report 26124110 (Version 1)
Quarter: 2025Q4

REPORT INFORMATION
  Report Type: Spontaneous
  Country: TW (occurrence: TW)
  Receive Date: 20251205
  Receipt Date: 20251205
  Transmission Date: 20260118
  Serious: Yes (Other)
  Sender: ROCHE
  Company Number: TW-ROCHE-10000444136

PATIENT

DRUGS (13)
  1. ATEZOLIZUMAB [Suspect]
     Active Substance: ATEZOLIZUMAB
     Indication: Non-small cell lung cancer
     Dosage: S/P ATEZOLIZUMAB/BEVACIZUMAB/PEMETREXED/CISPALTIN, UNKNOWN DOSE
     Route: 065
     Dates: start: 20210814, end: 20211014
  2. ATEZOLIZUMAB [Suspect]
     Active Substance: ATEZOLIZUMAB
     Dosage: S/P MAINTENANCE WITH ATEZOLIZUMAB/BEVACIZUMAB/PEMETREXED, UNKNOWN DOSE
     Route: 065
     Dates: start: 20211104, end: 20230820
  3. ATEZOLIZUMAB [Suspect]
     Active Substance: ATEZOLIZUMAB
     Dosage: S/P MAINTENANCE WITH ATEZOLIZUMAB/BEVACIZUMAB/PEMETREXED, UNKNOWN DOSE
     Route: 065
     Dates: start: 20210814, end: 20231104
  4. BEVACIZUMAB [Suspect]
     Active Substance: BEVACIZUMAB
     Indication: Non-small cell lung cancer
     Dosage: S/P ATEZOLIZUMAB/BEVACIZUMAB/PEMETREXED/CISPALTIN, UNKNOWN DOSE
     Route: 065
     Dates: start: 20210814, end: 20211010
  5. BEVACIZUMAB [Suspect]
     Active Substance: BEVACIZUMAB
     Dosage: S/P MAINTENANCE WITH ATEZOLIZUMAB/BEVACIZUMAB/PEMETREXED, UNKNOWN DOSE
     Route: 065
     Dates: start: 20211104, end: 20230820
  6. BEVACIZUMAB [Suspect]
     Active Substance: BEVACIZUMAB
     Dosage: S/P ATEZOLIZUMAB/BEVACIZUMAB/PEMETREXED/CISPALTIN, UNKNOWN DOSE
     Route: 065
     Dates: start: 20210814, end: 20231104
  7. OSIMERTINIB [Suspect]
     Active Substance: OSIMERTINIB
     Indication: Non-small cell lung cancer
     Route: 065
     Dates: start: 202308, end: 202403
  8. PEMETREXED [Suspect]
     Active Substance: PEMETREXED
     Indication: Non-small cell lung cancer
     Dosage: S/P ATEZOLIZUMAB/BEVACIZUMAB/PEMETREXED/CISPALTIN, UNKNOWN DOSE
     Route: 065
     Dates: start: 20210814, end: 20211014
  9. PEMETREXED [Suspect]
     Active Substance: PEMETREXED
     Dosage: S/P MAINTENANCE WITH ATEZOLIZUMAB/BEVACIZUMAB/PEMETREXED, UNKNOWN DOSE
     Route: 065
     Dates: start: 20211104, end: 20230820
  10. PEMETREXED [Suspect]
     Active Substance: PEMETREXED
     Dosage: S/P ATEZOLIZUMAB/BEVACIZUMAB/PEMETREXED/CISPALTIN, UNKNOWN DOSE
     Route: 065
     Dates: start: 20210814, end: 20231104
  11. CISPLATIN [Suspect]
     Active Substance: CISPLATIN
     Indication: Non-small cell lung cancer
     Dosage: S/P ATEZOLIZUMAB/BEVACIZUMAB/PEMETREXED/CISPALTIN, UNKNOWN DOSE
     Route: 065
     Dates: start: 20210814, end: 20211014
  12. CISPLATIN [Suspect]
     Active Substance: CISPLATIN
     Dosage: S/P ATEZOLIZUMAB/BEVACIZUMAB/PEMETREXED/CISPALTIN, UNKNOWN DOSE
     Route: 065
     Dates: start: 20210814, end: 20231104
  13. CAPMATINIB [Suspect]
     Active Substance: CAPMATINIB
     Indication: Non-small cell lung cancer
     Route: 065
     Dates: start: 202403, end: 202409

REACTIONS (5)
  - Off label use [Unknown]
  - Metastases to meninges [Unknown]
  - Hydrocephalus [Unknown]
  - Altered state of consciousness [Unknown]
  - Performance status decreased [Unknown]
